FAERS Safety Report 8210434-5 (Version None)
Quarter: 2012Q1

REPORT INFORMATION
  Report Type: 
  Country: None (occurrence: None)
  Receive Date: 20120314
  Receipt Date: 20110919
  Transmission Date: 20120608
  Serious: No
  Sender: FDA-Public Use
  Company Number: US-ASTRAZENECA-2011SE56502

PATIENT
  Age: 60 Year
  Sex: Male

DRUGS (4)
  1. ACID REFLUX MEDICATION [Concomitant]
     Indication: GASTROOESOPHAGEAL REFLUX DISEASE
  2. KAPADEX [Concomitant]
  3. PREVACID [Concomitant]
  4. METOPROLOL SUCCINATE [Suspect]
     Route: 048

REACTIONS (1)
  - GASTROOESOPHAGEAL REFLUX DISEASE [None]
